FAERS Safety Report 8277498-4 (Version None)
Quarter: 2012Q2

REPORT INFORMATION
  Report Type: 
  Country: None (occurrence: None)
  Receive Date: 20120412
  Receipt Date: 20120402
  Transmission Date: 20120825
  Serious: Yes (Hospitalization, Disabling, Other)
  Sender: FDA-Public Use
  Company Number: GB-BRISTOL-MYERS SQUIBB COMPANY-16279291

PATIENT
  Age: 84 Year
  Sex: Male
  Weight: 71 kg

DRUGS (5)
  1. SPRYCEL [Suspect]
     Dosage: DOSE:140MG
     Route: 048
     Dates: start: 20070707, end: 20111201
  2. RAMIPRIL [Concomitant]
     Route: 048
  3. DICLOFENAC SODIUM [Concomitant]
     Dosage: MODIFIED RELEASE
     Route: 048
  4. HYDROXOCOBALAMIN [Concomitant]
     Indication: VITAMIN B12 DEFICIENCY
     Route: 030
     Dates: start: 20090101
  5. FUROSEMIDE [Concomitant]
     Route: 048
     Dates: start: 20010101

REACTIONS (3)
  - PULMONARY ARTERIAL HYPERTENSION [None]
  - PLEURAL EFFUSION [None]
  - ASBESTOSIS [None]
